FAERS Safety Report 8536407-0 (Version None)
Quarter: 2012Q3

REPORT INFORMATION
  Report Type: 
  Country: None (occurrence: None)
  Receive Date: 20120725
  Receipt Date: 20120713
  Transmission Date: 20120928
  Serious: Yes (Hospitalization)
  Sender: FDA-Public Use
  Company Number: JP-ROCHE-1089177

PATIENT
  Sex: Male
  Weight: 59 kg

DRUGS (9)
  1. LIVACT [Concomitant]
     Indication: HEPATIC CIRRHOSIS
     Route: 048
  2. LASIX [Concomitant]
     Route: 048
  3. URSO 250 [Concomitant]
     Indication: HEPATIC CIRRHOSIS
     Route: 048
     Dates: end: 20110512
  4. COPEGUS [Suspect]
     Indication: HEPATIC CIRRHOSIS
     Route: 048
     Dates: start: 20110812, end: 20111205
  5. PEGASYS [Suspect]
     Route: 058
     Dates: start: 20110812, end: 20111209
  6. MONILAC [Concomitant]
     Route: 048
  7. ALDACTONE [Concomitant]
     Route: 048
  8. PEGASYS [Suspect]
     Indication: HEPATIC CIRRHOSIS
     Dosage: DOSAGE IS UNCERTAIN.
     Route: 058
     Dates: start: 20110708, end: 20110805
  9. BARACLUDE [Concomitant]
     Indication: HEPATITIS B
     Route: 048

REACTIONS (1)
  - PLEURAL EFFUSION [None]
